FAERS Safety Report 16624026 (Version 1)
Quarter: 2019Q3

REPORT INFORMATION
  Report Type: Spontaneous
  Country: US (occurrence: US)
  Receive Date: 20190724
  Receipt Date: 20190724
  Transmission Date: 20191004
  Serious: No
  Sender: FDA-Public Use
  Company Number: US-TEVA-2019-US-1081121

PATIENT

DRUGS (1)
  1. OXYMORPHONE [Suspect]
     Active Substance: OXYMORPHONE
     Route: 065

REACTIONS (2)
  - Depression [Unknown]
  - Drug hypersensitivity [Unknown]
